FAERS Safety Report 4710339-8 (Version None)
Quarter: 2005Q3

REPORT INFORMATION
  Report Type: 
  Country: None (occurrence: None)
  Receive Date: 20050707
  Receipt Date: 20050628
  Transmission Date: 20060218
  Serious: Yes (Other)
  Sender: FDA-Public Use
  Company Number: 2005082347

PATIENT
  Age: 67 Year
  Sex: Female

DRUGS (3)
  1. ATORVASTATIN CALCIUM [Suspect]
     Indication: BLOOD CHOLESTEROL INCREASED
     Dosage: 20 MG (20 MG, 1 IN 1 D), ORAL
     Route: 048
     Dates: start: 20020101
  2. LISINOPRIL [Concomitant]
  3. BISOPROLOL FUMARATE [Concomitant]

REACTIONS (1)
  - ENDODONTIC PROCEDURE [None]
